FAERS Safety Report 10586005 (Version 1)
Quarter: 2014Q4

REPORT INFORMATION
  Report Type: Spontaneous
  Country: US (occurrence: US)
  Receive Date: 20141115
  Receipt Date: 20141115
  Transmission Date: 20150529
  Serious: Yes (Other)
  Sender: FDA-Public Use
  Company Number: US-AUROBINDO-AUR-APL-2014-11993

PATIENT
  Age: 22 Year
  Sex: Female

DRUGS (1)
  1. TRIMETHOPRIM+SULFAMETHOXAZOLE [Suspect]
     Active Substance: SULFAMETHOXAZOLE\TRIMETHOPRIM
     Indication: URINARY TRACT INFECTION
     Dosage: UNK
     Route: 048

REACTIONS (8)
  - Drug reaction with eosinophilia and systemic symptoms [Unknown]
  - Retinal haemorrhage [Unknown]
  - Mucosal necrosis [Unknown]
  - Vitritis [Unknown]
  - Mucosal inflammation [Unknown]
  - Rash [Unknown]
  - Vision blurred [Unknown]
  - Autoimmune uveitis [Unknown]
